FAERS Safety Report 18312098 (Version 1)
Quarter: 2020Q3

REPORT INFORMATION
  Report Type: Spontaneous
  Country: US (occurrence: US)
  Receive Date: 20200925
  Receipt Date: 20200925
  Transmission Date: 20201103
  Serious: No
  Sender: FDA-Public Use
  Company Number: US-SUNOVION-2020SUN002696

PATIENT
  Sex: Female

DRUGS (1)
  1. LATUDA [Suspect]
     Active Substance: LURASIDONE HYDROCHLORIDE
     Indication: DEPRESSION
     Dosage: 60 MG
     Route: 048

REACTIONS (7)
  - Illness [Unknown]
  - Depression [Unknown]
  - Withdrawal syndrome [Unknown]
  - Off label use [Unknown]
  - Drug effective for unapproved indication [Unknown]
  - Eating disorder [Unknown]
  - Therapy cessation [Unknown]
